FAERS Safety Report 23793547 (Version 2)
Quarter: 2024Q2

REPORT INFORMATION
  Report Type: Spontaneous
  Country: PA (occurrence: PA)
  Receive Date: 20240429
  Receipt Date: 20240513
  Transmission Date: 20240716
  Serious: Yes (Other)
  Sender: FDA-Public Use
  Company Number: PA-002147023-NVSC2024PA086172

PATIENT
  Age: 61 Year
  Sex: Female

DRUGS (1)
  1. XOLAIR [Suspect]
     Active Substance: OMALIZUMAB
     Indication: Chronic spontaneous urticaria
     Dosage: UNK
     Route: 065

REACTIONS (1)
  - Urticarial vasculitis [Unknown]
